FAERS Safety Report 10042617 (Version 2)
Quarter: 2014Q2

REPORT INFORMATION
  Report Type: Report from Study
  Country: US (occurrence: US)
  Receive Date: 20140327
  Receipt Date: 20140515
  Transmission Date: 20141212
  Serious: Yes (Other)
  Sender: FDA-Public Use
  Company Number: PHEH2014US006039

PATIENT
  Sex: Male
  Weight: 49.89 kg

DRUGS (10)
  1. TOBI [Suspect]
     Indication: CYSTIC FIBROSIS
     Dosage: 300 MG (300 MG/ 5 ML), BID
     Route: 055
     Dates: end: 20140301
  2. TOBI [Suspect]
     Dosage: UNK UKN, UNK
  3. ALBUTEROL [Concomitant]
     Dosage: UNK UKN, UNK
  4. ATROVENT [Concomitant]
     Dosage: UNK UKN, UNK
  5. SINGULAIR [Concomitant]
     Dosage: UNK UKN, UNK
  6. ADVAIR [Concomitant]
     Dosage: UNK UKN, UNK
  7. SPIRIVA [Concomitant]
     Dosage: UNK UKN, UNK
  8. CREON [Concomitant]
     Dosage: UNK UKN, UNK
  9. HYPERTONIC SALINE SOLUTION [Concomitant]
     Dosage: UNK
  10. PRILOSEC [Concomitant]
     Dosage: UNK

REACTIONS (2)
  - Toxicity to various agents [Not Recovered/Not Resolved]
  - Tinnitus [Not Recovered/Not Resolved]
